FAERS Safety Report 15770737 (Version 1)
Quarter: 2018Q4

REPORT INFORMATION
  Report Type: Spontaneous
  Country: DK (occurrence: DK)
  Receive Date: 20181228
  Receipt Date: 20181228
  Transmission Date: 20190205
  Serious: Yes (Other)
  Sender: FDA-Public Use
  Company Number: PHHY2018DK196404

PATIENT
  Age: 2 Year
  Sex: Female

DRUGS (1)
  1. ACETYLSALICYLIC ACID [Suspect]
     Active Substance: ASPIRIN
     Indication: FOETAL EXPOSURE DURING PREGNANCY
     Dosage: MATERNAL DOSE: UNKNOWN
     Route: 064

REACTIONS (10)
  - Hypokinesia [Unknown]
  - Gait disturbance [Unknown]
  - Foot deformity [Unknown]
  - Foetal exposure during pregnancy [Unknown]
  - Acrodysostosis [Unknown]
  - Gross motor delay [Unknown]
  - Language disorder [Unknown]
  - Hypotonia [Unknown]
  - Facial paresis [Unknown]
  - Psychomotor skills impaired [Unknown]
